FAERS Safety Report 14164660 (Version 3)
Quarter: 2017Q4

REPORT INFORMATION
  Report Type: Spontaneous
  Country: US (occurrence: US)
  Receive Date: 20171107
  Receipt Date: 20171218
  Transmission Date: 20180321
  Serious: Yes (Hospitalization)
  Sender: FDA-Public Use
  Company Number: US-PFIZER INC-2017475343

PATIENT
  Age: 62 Year
  Sex: Female

DRUGS (3)
  1. TEMSIROLIMUS [Suspect]
     Active Substance: TEMSIROLIMUS
     Dosage: 12 MG, UNK; (2ND DOSE)
     Route: 042
     Dates: start: 20171102
  2. TEMSIROLIMUS [Suspect]
     Active Substance: TEMSIROLIMUS
     Indication: UTERINE CANCER
     Dosage: UNK; (1ST DOSE)
     Route: 042
     Dates: start: 20171019
  3. TEMSIROLIMUS [Suspect]
     Active Substance: TEMSIROLIMUS
     Dosage: 6 MG, UNK; (3RD DOSE, AT 1/2 DOSE OF 12 MG)
     Route: 042
     Dates: start: 20171130

REACTIONS (2)
  - Enteritis [Not Recovered/Not Resolved]
  - Product use in unapproved indication [Unknown]

NARRATIVE: CASE EVENT DATE: 20171019
